FAERS Safety Report 19484597 (Version 2)
Quarter: 2022Q1

REPORT INFORMATION
  Report Type: Spontaneous
  Country: DE (occurrence: DE)
  Receive Date: 20210702
  Receipt Date: 20220310
  Transmission Date: 20220424
  Serious: Yes (Hospitalization, Other)
  Sender: FDA-Public Use
  Company Number: DE-LUPIN PHARMACEUTICALS INC.-2021-10659

PATIENT
  Age: 57 Year
  Sex: Female

DRUGS (3)
  1. RAMIPRIL [Suspect]
     Active Substance: RAMIPRIL
     Indication: Hypokalaemia
     Dosage: 5 MILLIGRAM, BID (1-0-1)
     Route: 065
  2. POTASSIUM [Suspect]
     Active Substance: POTASSIUM
     Indication: Hypokalaemia
     Dosage: UNK UNK, QD (80.25 MMOL/DAY)
     Route: 065
  3. SPIRONOLACTONE [Suspect]
     Active Substance: SPIRONOLACTONE
     Indication: Hypokalaemia
     Dosage: 200 MILLIGRAM, QD (1-0-0)
     Route: 065

REACTIONS (4)
  - Hyperkalaemia [Recovering/Resolving]
  - Condition aggravated [Recovering/Resolving]
  - Electrocardiogram QRS complex prolonged [Unknown]
  - Electrocardiogram PR prolongation [Unknown]
